FAERS Safety Report 7524544-9 (Version None)
Quarter: 2011Q2

REPORT INFORMATION
  Report Type: 
  Country: None (occurrence: None)
  Receive Date: 20110606
  Receipt Date: 20110124
  Transmission Date: 20111010
  Serious: Yes (Hospitalization)
  Sender: FDA-Public Use
  Company Number: US-BAYER-200930995NA

PATIENT
  Age: 27 Year
  Sex: Female
  Weight: 70 kg

DRUGS (13)
  1. LOVENOX [Concomitant]
     Dosage: UNK
     Dates: start: 20070901
  2. LAXATIVES [Concomitant]
     Dates: start: 20030101, end: 20070101
  3. PEPLAX NOS [Concomitant]
     Dates: start: 20030101, end: 20070615
  4. ADVIL [Concomitant]
     Dates: start: 20000101
  5. SODIUM CHLORIDE [Concomitant]
     Dosage: 70 CC PER HOUR
  6. HEPARIN [Concomitant]
  7. COUMADIN [Concomitant]
  8. SIMVASTATIN [Concomitant]
     Dosage: UNK
     Dates: start: 20070901
  9. YAZ [Suspect]
     Indication: CONTRACEPTION
     Dosage: 1 DF (DAILY DOSE), QD, ORAL
     Route: 048
     Dates: start: 20070308, end: 20070817
  10. TRAZODONE HCL [Concomitant]
     Dosage: 25 - 50 MG G.HS
  11. BENADRYL [Concomitant]
     Dosage: 25 MG (DAILY DOSE), , INTRAVENOUS
     Route: 042
  12. COUMADIN [Concomitant]
     Dosage: 10 MG, ONCE
  13. SOLU-MEDROL [Concomitant]
     Dosage: 60 MG (DAILY DOSE), , INTRAVENOUS
     Route: 042

REACTIONS (8)
  - DEPRESSION [None]
  - ATELECTASIS [None]
  - CEREBROVASCULAR ACCIDENT [None]
  - APHASIA [None]
  - ATRIAL SEPTAL DEFECT [None]
  - DYSLIPIDAEMIA [None]
  - HEMIPARESIS [None]
  - ANAEMIA [None]
